FAERS Safety Report 9136600 (Version 1)
Quarter: 2013Q1

REPORT INFORMATION
  Report Type: Report from Study
  Country: US (occurrence: US)
  Receive Date: 20130304
  Receipt Date: 20130304
  Transmission Date: 20140127
  Serious: No
  Sender: FDA-Public Use
  Company Number: US-ABBOTT-12P-163-0989948-00

PATIENT
  Age: 36 None
  Sex: Male

DRUGS (1)
  1. ANDROGEL [Suspect]
     Indication: TESTICULAR FAILURE
     Dosage: 5 GRAM PACKETS,2 PACKETS IN THE MORNING
     Dates: end: 20120905

REACTIONS (2)
  - Malaise [Not Recovered/Not Resolved]
  - Asthenia [Not Recovered/Not Resolved]
